FAERS Safety Report 9651953 (Version 1)
Quarter: 2013Q4

REPORT INFORMATION
  Report Type: Spontaneous
  Country: US (occurrence: US)
  Receive Date: 20131029
  Receipt Date: 20131029
  Transmission Date: 20140711
  Serious: No
  Sender: FDA-Public Use
  Company Number: US-ENDO PHARMACEUTICALS INC.-PMVC20110004

PATIENT
  Age: 68 Year
  Sex: Male
  Weight: 90.8 kg

DRUGS (1)
  1. PROMETHAZINE VC WITH CODEINE SYRUP [Suspect]
     Indication: PRODUCT USED FOR UNKNOWN INDICATION
     Dosage: 1 TEASPOON
     Route: 048
     Dates: start: 201112, end: 201112

REACTIONS (1)
  - Rash [Recovered/Resolved]
